FAERS Safety Report 16449248 (Version 1)
Quarter: 2019Q2

REPORT INFORMATION
  Report Type: Spontaneous
  Country: US (occurrence: US)
  Receive Date: 20190619
  Receipt Date: 20190619
  Transmission Date: 20190711
  Serious: Yes (Other)
  Sender: FDA-Public Use
  Company Number: PHEH2019US024848

PATIENT
  Sex: Female

DRUGS (1)
  1. SANDOSTATIN LAR DEPOT [Suspect]
     Active Substance: OCTREOTIDE ACETATE
     Indication: PRODUCT USED FOR UNKNOWN INDICATION
     Dosage: 10 MG, QMO
     Route: 065

REACTIONS (8)
  - Flatulence [Unknown]
  - Back pain [Unknown]
  - Abdominal wall haemorrhage [Unknown]
  - Anaemia [Unknown]
  - Pain in extremity [Unknown]
  - Abnormal faeces [Unknown]
  - Neck pain [Unknown]
  - Abdominal pain [Unknown]
